FAERS Safety Report 8851183 (Version 1)
Quarter: 2012Q4

REPORT INFORMATION
  Report Type: 
  Country: US (occurrence: US)
  Receive Date: 20121019
  Receipt Date: 20121019
  Transmission Date: 20130627
  Serious: Yes (Hospitalization)
  Sender: FDA-Public Use
  Company Number: US-BRISTOL-MYERS SQUIBB COMPANY-16727539

PATIENT
  Age: 43 Year
  Sex: Female

DRUGS (1)
  1. YERVOY [Suspect]
     Indication: MALIGNANT MELANOMA
     Dosage: Inter unk date,restared on Mar12/Apr12
2 doses

REACTIONS (4)
  - Colitis [Unknown]
  - Megacolon [Unknown]
  - Large intestine perforation [Unknown]
  - Pancreatitis [Unknown]
